FAERS Safety Report 4575886-0 (Version None)
Quarter: 2005Q1

REPORT INFORMATION
  Report Type: 
  Country: None (occurrence: None)
  Receive Date: 20050207
  Receipt Date: 20050201
  Transmission Date: 20050727
  Serious: Yes (Death)
  Sender: FDA-Public Use
  Company Number: 04-05-0698

PATIENT
  Age: 38 Year
  Sex: Male
  Weight: 117.9352 kg

DRUGS (5)
  1. CLOZAPINE [Suspect]
     Indication: SCHIZOPHRENIA
     Dosage: 750 MG QD ORAL
     Route: 048
     Dates: start: 19990701, end: 20040401
  2. CELEXA [Suspect]
     Dosage: 60 MG QD ORAL
     Route: 048
  3. DEPAKOTE [Concomitant]
  4. ATIVAN [Concomitant]
  5. PEPCID [Concomitant]

REACTIONS (4)
  - ARRHYTHMIA [None]
  - DRUG INTERACTION [None]
  - DRUG LEVEL INCREASED [None]
  - SUDDEN DEATH [None]
